FAERS Safety Report 5143982-5 (Version None)
Quarter: 2006Q4

REPORT INFORMATION
  Report Type: 
  Country: None (occurrence: None)
  Receive Date: 20061106
  Receipt Date: 20061023
  Transmission Date: 20070319
  Serious: Yes (Hospitalization)
  Sender: FDA-Public Use
  Company Number: PHBS2006BR16606

PATIENT
  Age: 79 Year
  Sex: Female
  Weight: 70 kg

DRUGS (1)
  1. FORADIL [Suspect]
     Indication: BRONCHITIS
     Dosage: UNK, BID
     Dates: start: 20050101, end: 20061022

REACTIONS (9)
  - ASTHENIA [None]
  - CHRONIC OBSTRUCTIVE PULMONARY DISEASE [None]
  - COUGH [None]
  - DYSPNOEA [None]
  - FATIGUE [None]
  - NASOPHARYNGITIS [None]
  - PNEUMONIA [None]
  - PYREXIA [None]
  - TRACHEOBRONCHITIS [None]
